FAERS Safety Report 6856523-9 (Version None)
Quarter: 2010Q3

REPORT INFORMATION
  Report Type: 
  Country: None (occurrence: None)
  Receive Date: 20100719
  Receipt Date: 20100712
  Transmission Date: 20110219
  Serious: Yes (Other)
  Sender: FDA-Public Use
  Company Number: JP-ROCHE-714822

PATIENT
  Age: 69 Year
  Sex: Female

DRUGS (1)
  1. CEFTRIAXONE SODIUM [Suspect]
     Route: 065

REACTIONS (7)
  - ABDOMINAL PAIN [None]
  - ANAEMIA [None]
  - BONE MARROW FAILURE [None]
  - MELAENA [None]
  - MUSCLE HAEMORRHAGE [None]
  - SHOCK [None]
  - THROMBOCYTOPENIA [None]
